FAERS Safety Report 7257865-8 (Version None)
Quarter: 2011Q1

REPORT INFORMATION
  Report Type: 
  Country: None (occurrence: None)
  Receive Date: 20110129
  Receipt Date: 20100526
  Transmission Date: 20110831
  Serious: No
  Sender: FDA-Public Use
  Company Number: US-ABBOTT-10P-163-0647421-00

PATIENT
  Sex: Female

DRUGS (9)
  1. OXYCONTIN [Concomitant]
     Indication: PAIN
     Route: 048
  2. MICARDIS HCT [Concomitant]
     Indication: HYPERTENSION
     Dosage: 80/25 MG ONCE DAILY
     Route: 048
  3. PREMARIN [Concomitant]
     Indication: HORMONE REPLACEMENT THERAPY
     Route: 048
  4. RESTORIL [Concomitant]
     Indication: PRODUCT USED FOR UNKNOWN INDICATION
     Dosage: 30MG 2 TAB QHS
     Route: 048
  5. LIPITOR [Concomitant]
     Indication: PRODUCT USED FOR UNKNOWN INDICATION
  6. HUMIRA [Suspect]
     Indication: RHEUMATOID ARTHRITIS
     Dates: start: 20100101
  7. NORVASC [Concomitant]
     Indication: HYPERTENSION
     Route: 048
  8. DILAUDID [Concomitant]
     Indication: PAIN
     Route: 048
  9. PHENERGAN [Concomitant]
     Indication: NAUSEA
     Route: 048

REACTIONS (3)
  - MALAISE [None]
  - EXPIRED DRUG ADMINISTERED [None]
  - LACERATION [None]
